FAERS Safety Report 6716397-3 (Version None)
Quarter: 2010Q2

REPORT INFORMATION
  Report Type: 
  Country: None (occurrence: None)
  Receive Date: 20100507
  Receipt Date: 20100503
  Transmission Date: 20101027
  Serious: Yes (Other)
  Sender: FDA-Public Use
  Company Number: US-RB-000340-10

PATIENT
  Age: 27 Year
  Sex: Female

DRUGS (2)
  1. SUBOXONE [Suspect]
     Dosage: TAKES 12-16 MG DAILY
     Route: 060
     Dates: start: 20091101
  2. ANTI-DEPRESSANTS [Concomitant]
     Indication: DEPRESSION
     Dosage: UNKNOWN DOSING DETAILS
     Route: 065

REACTIONS (4)
  - ABORTION SPONTANEOUS [None]
  - DEPRESSION [None]
  - DRUG EXPOSURE DURING PREGNANCY [None]
  - VOMITING IN PREGNANCY [None]
